FAERS Safety Report 5670590-X (Version None)
Quarter: 2008Q1

REPORT INFORMATION
  Report Type: 
  Country: None (occurrence: None)
  Receive Date: 20080314
  Receipt Date: 20080314
  Transmission Date: 20080703
  Serious: Yes (Death)
  Sender: FDA-Public Use
  Company Number: None

PATIENT
  Age: 17 Year
  Sex: Male
  Weight: 69.4003 kg

DRUGS (1)
  1. METHADON HCL TAB [Suspect]

REACTIONS (2)
  - SELF-MEDICATION [None]
  - WRONG DRUG ADMINISTERED [None]
